FAERS Safety Report 19819717 (Version 1)
Quarter: 2021Q3

REPORT INFORMATION
  Report Type: Spontaneous
  Country: US (occurrence: US)
  Receive Date: 20210913
  Receipt Date: 20210913
  Transmission Date: 20211014
  Serious: Yes (Other)
  Sender: FDA-Public Use
  Company Number: US-BAUSCH-BL-2021-031002

PATIENT
  Age: 75 Year
  Sex: Female

DRUGS (12)
  1. DEXAMETHASONE. [Suspect]
     Active Substance: DEXAMETHASONE
     Dosage: POMALIDOMIDE PLUS DEXAMETHASONE
     Route: 065
  2. DEXAMETHASONE. [Suspect]
     Active Substance: DEXAMETHASONE
     Indication: PLASMA CELL MYELOMA
     Dosage: BORTEZOMIB PLUS DEXAMETHASONE (TOTAL 6 CYCLES)
     Route: 065
  3. DEXAMETHASONE. [Suspect]
     Active Substance: DEXAMETHASONE
     Dosage: IXAZOMIB PLUS DEXAMETHASONE
     Route: 065
  4. LENALIDOMIDE [Suspect]
     Active Substance: LENALIDOMIDE
     Indication: PLASMA CELL MYELOMA
     Dosage: BORTEZOMIB PLUS DEXAMETHASONE (TOTAL 6 CYCLES)
     Route: 065
  5. POMALIDOMIDE [Suspect]
     Active Substance: POMALIDOMIDE
     Indication: XANTHOGRANULOMA
     Route: 065
  6. BORTEZOMIB. [Suspect]
     Active Substance: BORTEZOMIB
     Indication: PLASMA CELL MYELOMA
  7. BORTEZOMIB. [Suspect]
     Active Substance: BORTEZOMIB
     Indication: XANTHOGRANULOMA
     Dosage: BORTEZOMIB PLUS DEXAMETHASONE (TOTAL 6 CYCLES)
     Route: 065
  8. IXAZOMIB [Suspect]
     Active Substance: IXAZOMIB
     Indication: XANTHOGRANULOMA
     Dosage: IXAZOMIB PLUS DEXAMETHASONE
     Route: 065
  9. POMALIDOMIDE [Suspect]
     Active Substance: POMALIDOMIDE
     Indication: PLASMA CELL MYELOMA
  10. DEXAMETHASONE. [Suspect]
     Active Substance: DEXAMETHASONE
     Indication: XANTHOGRANULOMA
     Dosage: LENALIDOMIDE PLUS DEXAMETHASONE (TOTAL 5 CYCLES)
     Route: 065
  11. LENALIDOMIDE [Suspect]
     Active Substance: LENALIDOMIDE
     Indication: XANTHOGRANULOMA
     Dosage: LENALIDOMIDE PLUS DEXAMETHASONE (TOTAL 5 CYCLES)
     Route: 065
  12. IXAZOMIB [Suspect]
     Active Substance: IXAZOMIB
     Indication: PLASMA CELL MYELOMA

REACTIONS (2)
  - Drug intolerance [Unknown]
  - Neutropenia [Unknown]
